FAERS Safety Report 21281344 (Version 1)
Quarter: 2022Q3

REPORT INFORMATION
  Report Type: Spontaneous
  Country: US (occurrence: None)
  Receive Date: 20220901
  Receipt Date: 20220901
  Transmission Date: 20221027
  Serious: Yes (unspecified)
  Sender: FDA-Public Use
  Company Number: None

PATIENT
  Age: 23 Year
  Sex: Female
  Weight: 103.5 kg

DRUGS (4)
  1. DULOXETINE [Suspect]
     Active Substance: DULOXETINE
     Indication: Anxiety
     Dosage: FREQUENCY : DAILY;?
     Route: 048
     Dates: start: 20220318, end: 20220323
  2. DULOXETINE [Suspect]
     Active Substance: DULOXETINE
     Indication: Depression
  3. DULOXETINE [Suspect]
     Active Substance: DULOXETINE
     Indication: Obsessive-compulsive disorder
  4. DULOXETINE [Suspect]
     Active Substance: DULOXETINE
     Indication: Attention deficit hyperactivity disorder

REACTIONS (12)
  - Anxiety [None]
  - Depression [None]
  - Headache [None]
  - Diarrhoea [None]
  - Nausea [None]
  - Vomiting [None]
  - Flushing [None]
  - Hyperhidrosis [None]
  - Blood pressure increased [None]
  - Insomnia [None]
  - Paraesthesia oral [None]
  - Paraesthesia oral [None]

NARRATIVE: CASE EVENT DATE: 20220320
